FAERS Safety Report 25168699 (Version 2)
Quarter: 2025Q3

REPORT INFORMATION
  Report Type: Spontaneous
  Country: US (occurrence: US)
  Receive Date: 20250407
  Receipt Date: 20250714
  Transmission Date: 20251021
  Serious: No
  Sender: INTRA-CELLULAR THERAPIES
  Company Number: US-INTRA-CELLULAR THERAPIES, INC.-2025ICT00267

PATIENT
  Age: 28 Year
  Sex: Female
  Weight: 100.68 kg

DRUGS (5)
  1. CAPLYTA [Suspect]
     Active Substance: LUMATEPERONE
     Indication: Depression
     Dosage: 42 MG, 1X/DAY
     Route: 048
     Dates: start: 20240924
  2. ZOLOFT [Concomitant]
     Active Substance: SERTRALINE HYDROCHLORIDE
  3. LAMICTAL [Concomitant]
     Active Substance: LAMOTRIGINE
  4. RITALIN [Concomitant]
     Active Substance: METHYLPHENIDATE HYDROCHLORIDE
     Dosage: 40 MG, 2X/DAY
  5. CLONIDINE [Concomitant]
     Active Substance: CLONIDINE

REACTIONS (2)
  - Depression [Not Recovered/Not Resolved]
  - Drug ineffective for unapproved indication [Not Recovered/Not Resolved]

NARRATIVE: CASE EVENT DATE: 20250101
